FAERS Safety Report 5899530-5 (Version None)
Quarter: 2008Q3

REPORT INFORMATION
  Report Type: 
  Country: None (occurrence: None)
  Receive Date: 20080925
  Receipt Date: 20080925
  Transmission Date: 20090109
  Serious: Yes (Other)
  Sender: FDA-Public Use
  Company Number: None

PATIENT
  Age: 19 Year
  Sex: Male
  Weight: 38.5 kg

DRUGS (2)
  1. DEPAKENE [Suspect]
     Indication: QUADRIPARESIS
     Dosage: 15ML 3 TIMES DAILY PO
     Route: 048
     Dates: start: 19880101
  2. LAMICTAL [Suspect]
     Indication: CONVULSION
     Dosage: 3 TABS 3 TIMES DAILY PO
     Route: 048
     Dates: start: 19960101

REACTIONS (1)
  - DIARRHOEA [None]
